FAERS Safety Report 5404690-6 (Version None)
Quarter: 2007Q3

REPORT INFORMATION
  Report Type: 
  Country: None (occurrence: None)
  Receive Date: 20070731
  Receipt Date: 20070719
  Transmission Date: 20080115
  Serious: Yes (Life-Threatening, Hospitalization)
  Sender: FDA-Public Use
  Company Number: 17068

PATIENT
  Age: 57 Year
  Sex: Female

DRUGS (12)
  1. ACYCLOVIR [Suspect]
     Indication: HERPES ZOSTER
     Dosage: 200 MG IV
     Route: 042
     Dates: start: 20070612, end: 20070615
  2. ACYCLOVIR [Suspect]
     Indication: HERPES ZOSTER
     Dosage: 200 MG
     Dates: start: 20070322, end: 20070329
  3. BISOPROLOL FUMARATE [Concomitant]
  4. CALCICHEW [Concomitant]
  5. CALCIUM ACETATE [Concomitant]
  6. CYCLOSPORINE [Concomitant]
  7. OMEPRAZOLE [Concomitant]
  8. ACETAMINOPHEN [Concomitant]
  9. PREDNISOLONE [Concomitant]
  10. VALPROATE SODIUM [Concomitant]
  11. TITRALAC [Concomitant]
  12. VANCOMYCIN [Concomitant]

REACTIONS (3)
  - HAEMODIALYSIS [None]
  - RENAL FAILURE CHRONIC [None]
  - TRANSPLANT REJECTION [None]
